FAERS Safety Report 8235794-0 (Version None)
Quarter: 2012Q1

REPORT INFORMATION
  Report Type: 
  Country: None (occurrence: None)
  Receive Date: 20120326
  Receipt Date: 20120315
  Transmission Date: 20120608
  Serious: Yes (Hospitalization, Other)
  Sender: FDA-Public Use
  Company Number: JP-FRI-1000024111

PATIENT
  Sex: Female

DRUGS (11)
  1. MEMANTINE [Suspect]
     Dosage: 10 MG
     Route: 048
     Dates: start: 20110709, end: 20110715
  2. MEMANTINE [Suspect]
     Dosage: 20 MG
     Route: 048
     Dates: start: 20110723, end: 20110910
  3. SIGMART [Concomitant]
     Indication: ANGINA PECTORIS
     Dosage: 22.5 MG
     Route: 048
     Dates: start: 20090824
  4. MEMANTINE [Suspect]
     Dosage: 15 MG
     Route: 048
     Dates: start: 20110716, end: 20110722
  5. SERMION [Concomitant]
     Indication: CEREBRAL INFARCTION
     Dosage: 45 MG
     Route: 048
     Dates: start: 20090824
  6. PURSENNID [Concomitant]
     Indication: CONSTIPATION
     Dosage: 12 MG
     Route: 048
     Dates: start: 20090824
  7. MUCOSOLVAN [Concomitant]
     Indication: ASTHMA
     Dosage: 45 MG
     Route: 048
     Dates: start: 20090824
  8. STAYBLA [Concomitant]
     Indication: NEUROGENIC BLADDER
     Dosage: 0.4 MG
     Route: 048
     Dates: start: 20090824
  9. MEMANTINE [Suspect]
     Indication: DEMENTIA
     Dosage: 5 MG
     Route: 048
     Dates: start: 20110702, end: 20110708
  10. RASILEZ [Concomitant]
     Indication: HYPERTENSION
     Dosage: 150 MG
     Route: 048
     Dates: start: 20101212
  11. THEO-DUR [Concomitant]
     Indication: ASTHMA
     Dosage: 100 MG
     Route: 048
     Dates: start: 20090824

REACTIONS (3)
  - CARDIAC FAILURE CONGESTIVE [None]
  - DECREASED APPETITE [None]
  - OEDEMA PERIPHERAL [None]
